FAERS Safety Report 4730645-0 (Version None)
Quarter: 2005Q3

REPORT INFORMATION
  Report Type: 
  Country: None (occurrence: None)
  Receive Date: 20050801
  Receipt Date: 20030219
  Transmission Date: 20060218
  Serious: Yes (Hospitalization, Other)
  Sender: FDA-Public Use
  Company Number: PHNU2003DE00981

PATIENT
  Age: 24 Year
  Sex: Male
  Weight: 53 kg

DRUGS (7)
  1. SANDIMMUNE [Suspect]
     Indication: RENAL TRANSPLANT
     Dosage: 250 MG DAILY
     Route: 048
     Dates: start: 20010329, end: 20020601
  2. MYCOPHENOLATE MOFETIL [Concomitant]
     Dosage: 1500 MG DAILY
     Dates: start: 20010329
  3. STEROIDS NOS [Concomitant]
     Dosage: 12.5 MG DAILY
     Dates: start: 20010329
  4. DECORTIN [Concomitant]
     Indication: IMMUNOSUPPRESSION
     Dosage: 10 MG DAILY
     Dates: start: 20010329, end: 20040310
  5. CELLCEPT [Concomitant]
     Indication: IMMUNOSUPPRESSION
     Dosage: 750 MG DAILY
     Dates: start: 20010329, end: 20030401
  6. PROGRAF [Concomitant]
     Indication: IMMUNOSUPPRESSION
     Dosage: 6 MG DAILY
     Dates: start: 20021001, end: 20030401
  7. SIROLIMUS [Concomitant]
     Indication: IMMUNOSUPPRESSION
     Dosage: 3 MG DAILY
     Dates: start: 20030401, end: 20040310

REACTIONS (10)
  - CHOLECYSTECTOMY [None]
  - CHOLELITHIASIS [None]
  - CYTOMEGALOVIRUS INFECTION [None]
  - GLOMERULONEPHROPATHY [None]
  - HAEMORRHOID OPERATION [None]
  - HAEMORRHOIDS [None]
  - NEPHRECTOMY [None]
  - PENIS DEVIATION [None]
  - PLASTIC SURGERY [None]
  - TRANSPLANT REJECTION [None]
